FAERS Safety Report 19191146 (Version 1)
Quarter: 2021Q2

REPORT INFORMATION
  Report Type: Spontaneous
  Country: US (occurrence: US)
  Receive Date: 20210429
  Receipt Date: 20210429
  Transmission Date: 20210717
  Serious: No
  Sender: FDA-Public Use
  Company Number: US-SA-2021SA136314

PATIENT
  Age: 62 Year
  Sex: Female

DRUGS (14)
  1. MECLIZINE HCL [Concomitant]
     Active Substance: MECLIZINE HYDROCHLORIDE
  2. IRON [Concomitant]
     Active Substance: IRON
  3. LINZESS [Concomitant]
     Active Substance: LINACLOTIDE
  4. LEVOTHYROXIN [Concomitant]
     Active Substance: LEVOTHYROXINE
  5. ALBUTEROL [SALBUTAMOL] [Concomitant]
     Active Substance: ALBUTEROL
  6. AMITIZA [Concomitant]
     Active Substance: LUBIPROSTONE
  7. DULOXETINE. [Concomitant]
     Active Substance: DULOXETINE
  8. LISINOPRIL. [Concomitant]
     Active Substance: LISINOPRIL
  9. LASIX [Concomitant]
     Active Substance: FUROSEMIDE
  10. KEVZARA [Suspect]
     Active Substance: SARILUMAB
     Indication: PARAESTHESIA
     Dosage: 200 MG, QOW
     Route: 058
  11. BUSPIRONE HYDROCHLORIDE. [Concomitant]
     Active Substance: BUSPIRONE HYDROCHLORIDE
  12. PANTOPRAZOLE [Concomitant]
     Active Substance: PANTOPRAZOLE
  13. PREGABALIN. [Concomitant]
     Active Substance: PREGABALIN
  14. MONTELUKAST [Concomitant]
     Active Substance: MONTELUKAST SODIUM

REACTIONS (2)
  - Product use issue [Unknown]
  - Product use in unapproved indication [Unknown]

NARRATIVE: CASE EVENT DATE: 20210417
